FAERS Safety Report 17022757 (Version 2)
Quarter: 2020Q1

REPORT INFORMATION
  Report Type: Spontaneous
  Country: FR (occurrence: FR)
  Receive Date: 20191112
  Receipt Date: 20200109
  Transmission Date: 20200409
  Serious: Yes (Hospitalization)
  Sender: FDA-Public Use
  Company Number: FR-009507513-1911FRA002069

PATIENT
  Age: 60 Year
  Sex: Female
  Weight: 72 kg

DRUGS (7)
  1. KARDEGIC [Concomitant]
     Active Substance: ASPIRIN DL-LYSINE
  2. INNOHEP [Concomitant]
     Active Substance: TINZAPARIN SODIUM
  3. PREDNISOLONE. [Concomitant]
     Active Substance: PREDNISOLONE
     Dosage: 20 MILLIGRAM
  4. DIFFU-K [Concomitant]
     Active Substance: POTASSIUM CHLORIDE
  5. IRBESARTAN. [Concomitant]
     Active Substance: IRBESARTAN
     Dosage: 150 MILLIGRAM
  6. KEYTRUDA [Suspect]
     Active Substance: PEMBROLIZUMAB
     Indication: LUNG ADENOCARCINOMA
     Dosage: 200 MILLIGRAM (3 SECONDS)
     Route: 042
     Dates: start: 20190520, end: 20191016
  7. PANTOPRAZOLE [Concomitant]
     Active Substance: PANTOPRAZOLE
     Dosage: 20 MILLIGRAM

REACTIONS (3)
  - Colitis [Recovering/Resolving]
  - Proctitis [Recovering/Resolving]
  - Autoimmune pancreatitis [Recovering/Resolving]

NARRATIVE: CASE EVENT DATE: 20191009
